FAERS Safety Report 8157362-1 (Version None)
Quarter: 2012Q1

REPORT INFORMATION
  Report Type: 
  Country: None (occurrence: None)
  Receive Date: 20120103
  Receipt Date: 20110930
  Transmission Date: 20120608
  Serious: No
  Sender: FDA-Public Use
  Company Number: AE-2011-001934

PATIENT
  Sex: Female

DRUGS (3)
  1. PEGASYS [Concomitant]
  2. REBAVIRIN(RIBAVIRIN) [Concomitant]
  3. INCIVEK [Suspect]
     Dosage: 2250 MG (750 MG,1 IN 8 HR) ,ORAL
     Route: 048
     Dates: start: 20110915

REACTIONS (1)
  - FATIGUE [None]
